FAERS Safety Report 24923161 (Version 2)
Quarter: 2025Q3

REPORT INFORMATION
  Report Type: Report from Study
  Country: ZA (occurrence: ZA)
  Receive Date: 20250204
  Receipt Date: 20250803
  Transmission Date: 20251020
  Serious: Yes (Other)
  Sender: ALEXION PHARMACEUTICALS
  Company Number: ZA-AstraZeneca-CH-00792432A

PATIENT
  Age: 57 Year
  Sex: Male

DRUGS (6)
  1. BUDESONIDE\FORMOTEROL [Suspect]
     Active Substance: BUDESONIDE\FORMOTEROL
     Indication: Asthma
  2. ALPRAZOLAM [Concomitant]
     Active Substance: ALPRAZOLAM
     Indication: Anxiety
  3. Tramazac [Concomitant]
     Indication: Pain
  4. QUETIAPINE [Concomitant]
     Active Substance: QUETIAPINE
     Indication: Psychiatric evaluation
  5. DORMONOCT [Concomitant]
     Active Substance: LOPRAZOLAM
     Indication: Somnolence
  6. FLUOXETINE HYDROCHLORIDE [Concomitant]
     Active Substance: FLUOXETINE HYDROCHLORIDE
     Indication: Depression

REACTIONS (2)
  - Neoplasm malignant [Unknown]
  - Diarrhoea [Unknown]
